FAERS Safety Report 9768203 (Version 2)
Quarter: 2014Q1

REPORT INFORMATION
  Report Type: Report from Study
  Country: DE (occurrence: DE)
  Receive Date: 20131217
  Receipt Date: 20140107
  Transmission Date: 20141002
  Serious: Yes (Death, Hospitalization)
  Sender: FDA-Public Use
  Company Number: DE-GLAXOSMITHKLINE-D0082217A

PATIENT
  Age: 84 Year
  Sex: Male
  Weight: 84 kg

DRUGS (1)
  1. VOTRIENT [Suspect]
     Indication: RENAL CELL CARCINOMA
     Dosage: 400MG PER DAY
     Route: 065
     Dates: start: 20130308

REACTIONS (2)
  - Disease progression [Fatal]
  - Diarrhoea [Unknown]
